FAERS Safety Report 8758817 (Version 1)
Quarter: 2012Q4

REPORT INFORMATION
  Report Type: 
  Country: NL (occurrence: NL)
  Receive Date: 20120829
  Receipt Date: 20120829
  Transmission Date: 20130627
  Serious: Yes (Other)
  Sender: FDA-Public Use
  Company Number: PHHY2012NL074214

PATIENT
  Age: 64 Year
  Sex: Female

DRUGS (4)
  1. ZOMETA [Suspect]
     Indication: BREAST CANCER METASTATIC
     Dosage: 4 mg/100ml, 1x per 28 days
     Dates: start: 20110207
  2. ZOMETA [Suspect]
     Dosage: 4 mg/100ml, 1x per 28 days
     Dates: start: 20120727
  3. ZOMETA [Suspect]
     Dosage: 4 mg/100ml, 1x per 28 days
     Dates: start: 20120823
  4. CHEMOTHERAPEUTICS NOS [Concomitant]

REACTIONS (4)
  - General physical health deterioration [Unknown]
  - Malaise [Not Recovered/Not Resolved]
  - Fatigue [Unknown]
  - Lethargy [Unknown]
